FAERS Safety Report 9818940 (Version 1)
Quarter: 2014Q1

REPORT INFORMATION
  Report Type: Report from Study
  Country: US (occurrence: US)
  Receive Date: 20140115
  Receipt Date: 20140115
  Transmission Date: 20141002
  Serious: Yes (Death)
  Sender: FDA-Public Use
  Company Number: PHEH2014US001145

PATIENT
  Age: 18 Year
  Sex: Male

DRUGS (1)
  1. TOBI [Suspect]
     Indication: CYSTIC FIBROSIS
     Dosage: 300 MG, TWICE A DAY (FOR 28 DAYS THEN OFF 28 DAYS )
     Route: 055
     Dates: start: 20130415

REACTIONS (1)
  - Death [Fatal]
